FAERS Safety Report 24025024 (Version 7)
Quarter: 2024Q3

REPORT INFORMATION
  Report Type: Report from Study
  Country: CN (occurrence: CN)
  Receive Date: 20240628
  Receipt Date: 20240710
  Transmission Date: 20241017
  Serious: No
  Sender: ROCHE
  Company Number: CN-ROCHE-3358887

PATIENT
  Age: 40 Year
  Sex: Female
  Weight: 62.5 kg

DRUGS (12)
  1. ALECTINIB [Suspect]
     Active Substance: ALECTINIB
     Indication: Lung cancer metastatic
     Route: 048
     Dates: start: 20230224
  2. PAIN KILLER (UNK INGREDIENTS) [Concomitant]
     Indication: Analgesic therapy
     Dates: start: 20230224
  3. ZOLEDRONIC ACID [Concomitant]
     Active Substance: ZOLEDRONIC ACID
     Dosage: THERAPEUTIC BONE ROTATION CONCENTRATED SOLUTION
     Route: 042
     Dates: start: 20230419, end: 20230419
  4. ZOLEDRONIC ACID [Concomitant]
     Active Substance: ZOLEDRONIC ACID
     Dosage: NEXT DOSE ON 08/AUG/2023, 13/JUN/2023, 11/JUL/2023, 05/SEP/2023, 19/DEC/2023, 16/JAN/2024, 06/FEB/20
     Route: 042
     Dates: start: 20230516, end: 20230516
  5. DEXAMETHASONE SODIUM PHOSPHATE [Concomitant]
     Active Substance: DEXAMETHASONE PHOSPHATE\DEXAMETHASONE SODIUM PHOSPHATE
     Indication: Pyrexia
     Route: 042
     Dates: start: 20230419, end: 20230419
  6. DEXAMETHASONE SODIUM PHOSPHATE [Concomitant]
     Active Substance: DEXAMETHASONE PHOSPHATE\DEXAMETHASONE SODIUM PHOSPHATE
     Route: 042
     Dates: start: 20230516, end: 20230516
  7. DEXAMETHASONE SODIUM PHOSPHATE [Concomitant]
     Active Substance: DEXAMETHASONE PHOSPHATE\DEXAMETHASONE SODIUM PHOSPHATE
     Dosage: NEXT DOSE ON 13/JUN/2023, 08/AUG/2023
     Route: 042
     Dates: start: 20230711, end: 20230711
  8. ACETAMINOPHEN\ASPIRIN\CAFFEINE [Concomitant]
     Active Substance: ACETAMINOPHEN\ASPIRIN\CAFFEINE
     Dosage: 1 CAPSULE
     Route: 048
     Dates: start: 20230723, end: 20230723
  9. NORFLOXACIN [Concomitant]
     Active Substance: NORFLOXACIN
     Route: 048
     Dates: start: 20230723, end: 20230723
  10. MONTMORILLONITE [Concomitant]
     Active Substance: MONTMORILLONITE
     Route: 048
     Dates: start: 20230723, end: 20230723
  11. MOXIFLOXACIN HYDROCHLORIDE [Concomitant]
     Active Substance: MOXIFLOXACIN HYDROCHLORIDE\MOXIFLOXACIN HYDROCHLORIDE MONOHYDRATE
     Route: 048
     Dates: start: 20230723, end: 20230723
  12. URSODIOL [Concomitant]
     Active Substance: URSODIOL
     Route: 048
     Dates: start: 20240206

REACTIONS (1)
  - Insomnia [Not Recovered/Not Resolved]

NARRATIVE: CASE EVENT DATE: 20230302
